FAERS Safety Report 13718486 (Version 1)
Quarter: 2017Q3

REPORT INFORMATION
  Report Type: Spontaneous
  Country: US (occurrence: US)
  Receive Date: 20170705
  Receipt Date: 20170705
  Transmission Date: 20171127
  Serious: Yes (Other)
  Sender: FDA-Public Use
  Company Number: US-PFIZER INC-2017285505

PATIENT
  Sex: Female

DRUGS (2)
  1. XELJANZ XR [Suspect]
     Active Substance: TOFACITINIB CITRATE
     Dosage: 11 MG, DAILY
  2. METHOTREXATE. [Concomitant]
     Active Substance: METHOTREXATE
     Dosage: UNK

REACTIONS (23)
  - Tenderness [Unknown]
  - Lordosis [Unknown]
  - Malaise [Unknown]
  - Night sweats [Unknown]
  - Insomnia [Unknown]
  - Feeling abnormal [Unknown]
  - Cardiac disorder [Unknown]
  - Oropharyngeal pain [Unknown]
  - Joint range of motion decreased [Unknown]
  - Alopecia [Unknown]
  - Paraesthesia [Unknown]
  - Loss of consciousness [Unknown]
  - Chest pain [Unknown]
  - Cluster headache [Unknown]
  - Cystitis noninfective [Unknown]
  - Urinary tract infection [Recovered/Resolved]
  - Palpitations [Unknown]
  - Dyspnoea [Unknown]
  - Arthritis [Unknown]
  - Hypoaesthesia [Unknown]
  - Increased tendency to bruise [Unknown]
  - Fall [Unknown]
  - Dysuria [Unknown]

NARRATIVE: CASE EVENT DATE: 201706
